FAERS Safety Report 11211688 (Version 1)
Quarter: 2015Q2

REPORT INFORMATION
  Report Type: Spontaneous
  Country: US (occurrence: US)
  Receive Date: 20150623
  Receipt Date: 20150623
  Transmission Date: 20150821
  Serious: No
  Sender: FDA-Public Use
  Company Number: US-BRISTOL-MYERS SQUIBB COMPANY-BMS-2015-039143

PATIENT
  Sex: Female
  Weight: 59 kg

DRUGS (1)
  1. ABILIFY [Suspect]
     Active Substance: ARIPIPRAZOLE
     Indication: SCHIZOPHRENIA
     Dosage: 20 MG, QD
     Route: 048
     Dates: start: 2006, end: 2007

REACTIONS (4)
  - Weight increased [Recovered/Resolved]
  - Glucose tolerance impaired [Recovered/Resolved]
  - Anaemia [Recovered/Resolved]
  - Skin infection [Recovered/Resolved]
